APPROVED DRUG PRODUCT: NITROFURANTOIN
Active Ingredient: NITROFURANTOIN, MACROCRYSTALLINE
Strength: 50MG
Dosage Form/Route: CAPSULE;ORAL
Application: A211935 | Product #002 | TE Code: AB
Applicant: ALEMBIC PHARMACEUTICALS LTD
Approved: Jun 25, 2021 | RLD: No | RS: No | Type: RX